FAERS Safety Report 6395338-5 (Version None)
Quarter: 2009Q4

REPORT INFORMATION
  Report Type: 
  Country: None (occurrence: None)
  Receive Date: 20091007
  Receipt Date: 20091001
  Transmission Date: 20100525
  Serious: Yes (Hospitalization)
  Sender: FDA-Public Use
  Company Number: SPV1-2009-01836

PATIENT
  Age: 74 Year
  Sex: Female
  Weight: 84.4 kg

DRUGS (12)
  1. LIALDA [Suspect]
     Indication: ILEITIS
     Dosage: 2.4 G, 1X/DAY:QD, ORAL
     Route: 048
     Dates: start: 20070911
  2. ASPIRIN [Concomitant]
  3. SINGULAIR [Concomitant]
  4. NEXIUM [Concomitant]
  5. KLOR-CON [Concomitant]
  6. FUROSEMIDE [Concomitant]
  7. ETODOLAC [Concomitant]
  8. FERROUS SULFATE TAB [Concomitant]
  9. ALPRAZOLAM [Concomitant]
  10. GABAPENTIN [Concomitant]
  11. GAS-X                           /01765401/ (SILICON DIOXIDE, SIMETICON [Concomitant]
  12. REVLIMID [Concomitant]

REACTIONS (5)
  - ABDOMINAL PAIN UPPER [None]
  - FALL [None]
  - FEELING ABNORMAL [None]
  - HIP FRACTURE [None]
  - JOINT INJURY [None]
